FAERS Safety Report 5570089-5 (Version None)
Quarter: 2007Q4

REPORT INFORMATION
  Report Type: 
  Country: None (occurrence: None)
  Receive Date: 20071218
  Receipt Date: 20071203
  Transmission Date: 20080405
  Serious: Yes (Death, Life-Threatening)
  Sender: FDA-Public Use
  Company Number: 2007P1000715

PATIENT

DRUGS (2)
  1. BUSULFAN (BUSULFAN) [Suspect]
     Indication: STEM CELL TRANSPLANT
     Dosage: 26.8 ML;QD;IV
     Route: 042
     Dates: start: 20070604, end: 20070605
  2. FLUDARABINE PHOSPHATE [Concomitant]

REACTIONS (14)
  - ADENOVIRAL HAEMORRHAGIC CYSTITIS [None]
  - DELAYED ENGRAFTMENT [None]
  - DYSPNOEA [None]
  - HAEMATURIA [None]
  - MUCOUS MEMBRANE DISORDER [None]
  - PHARYNGEAL OEDEMA [None]
  - PNEUMONIA BACTERIAL [None]
  - POST PROCEDURAL COMPLICATION [None]
  - PULMONARY HAEMORRHAGE [None]
  - SECONDARY IMMUNODEFICIENCY [None]
  - STEM CELL TRANSPLANT [None]
  - STENOTROPHOMONAS INFECTION [None]
  - STENOTROPHOMONAS SEPSIS [None]
  - STOMATITIS [None]
